FAERS Safety Report 5237746-1 (Version None)
Quarter: 2007Q1

REPORT INFORMATION
  Report Type: 
  Country: None (occurrence: None)
  Receive Date: 20070214
  Receipt Date: 20070212
  Transmission Date: 20070707
  Serious: Yes (Hospitalization)
  Sender: FDA-Public Use
  Company Number: US-GLAXOSMITHKLINE-A0635058A

PATIENT
  Age: 78 Year
  Sex: Female
  Weight: 75.9 kg

DRUGS (9)
  1. TOPOTECAN HYDROCHLORIDE [Suspect]
     Dosage: 4MGM2 CYCLIC
     Route: 042
     Dates: start: 20061218
  2. CARBOPLATIN [Suspect]
     Dosage: 575MG CYCLIC
     Route: 042
     Dates: start: 20061218
  3. LOTREL [Concomitant]
     Indication: HYPERTENSION
  4. SYNTHROID [Concomitant]
     Indication: HYPOTHYROIDISM
     Dosage: 100MCG PER DAY
  5. DETROL LA [Concomitant]
     Dosage: 10MG PER DAY
  6. TOPROL-XL [Concomitant]
     Indication: HYPERTENSION
     Dosage: 25MG PER DAY
  7. NEXIUM [Concomitant]
     Dosage: 40MG PER DAY
  8. MOBIC [Concomitant]
     Indication: ARTHRITIS
     Dosage: 15MG PER DAY
  9. MULTI-VITAMIN [Concomitant]
     Indication: NUTRITIONAL SUPPORT
     Dosage: 1TAB PER DAY

REACTIONS (5)
  - DEHYDRATION [None]
  - DYSPNOEA [None]
  - NEUTROPENIA [None]
  - PYREXIA [None]
  - THROMBOCYTOPENIA [None]
